FAERS Safety Report 6468539-5 (Version None)
Quarter: 2009Q4

REPORT INFORMATION
  Report Type: 
  Country: None (occurrence: None)
  Receive Date: 20091130
  Receipt Date: 20091113
  Transmission Date: 20100525
  Serious: Yes (Other)
  Sender: FDA-Public Use
  Company Number: KR-ROSEMONTLT-UKRP0003589-13-NOV-2009

PATIENT
  Age: 46 Year
  Sex: Female

DRUGS (1)
  1. TAMOXIFEN (TAMOXIFEN) [Suspect]
     Indication: BREAST CANCER
     Dates: start: 20050601

REACTIONS (3)
  - BREAST CANCER [None]
  - BREAST MASS [None]
  - CHLOASMA [None]
